FAERS Safety Report 6638496-7 (Version None)
Quarter: 2010Q1

REPORT INFORMATION
  Report Type: 
  Country: None (occurrence: None)
  Receive Date: 20100317
  Receipt Date: 20100316
  Transmission Date: 20100710
  Serious: Yes (Life-Threatening)
  Sender: FDA-Public Use
  Company Number: MY-B.I. PHARMACEUTICALS,INC./RIDGEFIELD-2010-CS-00229CS

PATIENT
  Age: 80 Year
  Sex: Male

DRUGS (2)
  1. MICARDIS HCT [Suspect]
     Dosage: 80/12.5MG
     Route: 048
  2. CALCIUM CHANNEL BLOCKER [Concomitant]

REACTIONS (1)
  - RENAL FAILURE [None]
